FAERS Safety Report 5833523-9 (Version None)
Quarter: 2008Q3

REPORT INFORMATION
  Report Type: 
  Country: None (occurrence: None)
  Receive Date: 20080804
  Receipt Date: 20080804
  Transmission Date: 20090109
  Serious: Yes (Disabling, Other)
  Sender: FDA-Public Use
  Company Number: None

PATIENT
  Sex: Female
  Weight: 74.8435 kg

DRUGS (2)
  1. CELEBREX [Suspect]
     Indication: PAIN
     Dosage: 1 12 HOURS PO
     Route: 048
     Dates: start: 20080605, end: 20080718
  2. CELEBREX [Suspect]
     Indication: TEMPOROMANDIBULAR JOINT SYNDROME
     Dosage: 1 12 HOURS PO
     Route: 048
     Dates: start: 20080605, end: 20080718

REACTIONS (19)
  - ANOREXIA [None]
  - CHOKING [None]
  - COUGH [None]
  - DRUG HYPERSENSITIVITY [None]
  - DYSPHONIA [None]
  - EAR DISCOMFORT [None]
  - EAR DISORDER [None]
  - EAR PAIN [None]
  - HEADACHE [None]
  - NAUSEA [None]
  - NECK PAIN [None]
  - OTITIS MEDIA [None]
  - PALPITATIONS [None]
  - PRURITUS [None]
  - SOMNOLENCE [None]
  - THROAT IRRITATION [None]
  - THROAT TIGHTNESS [None]
  - TINNITUS [None]
  - VOMITING [None]
